FAERS Safety Report 20895067 (Version 8)
Quarter: 2023Q1

REPORT INFORMATION
  Report Type: Spontaneous
  Country: US (occurrence: US)
  Receive Date: 20220531
  Receipt Date: 20230111
  Transmission Date: 20230418
  Serious: Yes (Other)
  Sender: FDA-Public Use
  Company Number: US-GLAXOSMITHKLINE-US2022AMR083824

PATIENT

DRUGS (6)
  1. ZEJULA [Suspect]
     Active Substance: NIRAPARIB
     Indication: Ovarian cancer
     Dosage: 200 MG, QD
     Route: 048
     Dates: start: 20220513
  2. ZEJULA [Suspect]
     Active Substance: NIRAPARIB
     Dosage: 100 MG, QD
     Dates: start: 202206
  3. ZEJULA [Suspect]
     Active Substance: NIRAPARIB
     Dosage: 100 MG, QD
  4. ZEJULA [Suspect]
     Active Substance: NIRAPARIB
     Dosage: 100 MG, QD
     Dates: start: 20221201
  5. MIRALAX [Suspect]
     Active Substance: POLYETHYLENE GLYCOL 3350
     Indication: Constipation
     Dosage: UNK
  6. MIRALAX [Suspect]
     Active Substance: POLYETHYLENE GLYCOL 3350
     Dosage: UNK, Z (REDUCED DOSE)

REACTIONS (30)
  - Cardiac flutter [Recovered/Resolved]
  - Nausea [Recovered/Resolved]
  - Sneezing [Unknown]
  - Eye pruritus [Unknown]
  - Seasonal allergy [Recovered/Resolved]
  - Chest discomfort [Not Recovered/Not Resolved]
  - Oral mucosal blistering [Unknown]
  - Chills [Unknown]
  - Dizziness [Recovering/Resolving]
  - Constipation [Not Recovered/Not Resolved]
  - Proctalgia [Unknown]
  - Temperature intolerance [Unknown]
  - Headache [Unknown]
  - Dyspepsia [Unknown]
  - Palpitations [Recovering/Resolving]
  - Diarrhoea [Unknown]
  - Flatulence [Unknown]
  - Faeces discoloured [Unknown]
  - Abnormal faeces [Unknown]
  - Rash pruritic [Recovered/Resolved]
  - Acne [Recovered/Resolved]
  - Fatigue [Recovering/Resolving]
  - Blood magnesium decreased [Unknown]
  - Myalgia [Unknown]
  - COVID-19 [Recovering/Resolving]
  - Productive cough [Unknown]
  - Increased tendency to bruise [Recovering/Resolving]
  - Fungal infection [Recovering/Resolving]
  - Abdominal distension [Unknown]
  - Product dose omission issue [Unknown]

NARRATIVE: CASE EVENT DATE: 20220501
